FAERS Safety Report 21210685 (Version 4)
Quarter: 2022Q4

REPORT INFORMATION
  Report Type: Spontaneous
  Country: ZA (occurrence: ZA)
  Receive Date: 20220815
  Receipt Date: 20221129
  Transmission Date: 20230113
  Serious: Yes (Death, Other)
  Sender: FDA-Public Use
  Company Number: ZA-CELLTRION INC.-2022ZA009902

PATIENT

DRUGS (4)
  1. INFLIXIMAB [Suspect]
     Active Substance: INFLIXIMAB
     Indication: Crohn^s disease
     Dosage: 300 MG AT 0 WEEKS; 2 WEEKS; 6 WEEKS AND 8 WEEK INTERVALS
     Route: 042
     Dates: start: 20220602
  2. INFLIXIMAB [Suspect]
     Active Substance: INFLIXIMAB
     Dosage: 2 WEEKS (START OF LOADING DOSE) ^
     Route: 042
     Dates: start: 20220616
  3. INFLIXIMAB [Suspect]
     Active Substance: INFLIXIMAB
     Dosage: UNK
     Route: 042
  4. AZATHIOPRINE [Concomitant]
     Active Substance: AZATHIOPRINE
     Indication: Crohn^s disease
     Dosage: DAILY DOSAGE: 100 MG
     Route: 048
     Dates: start: 2016

REACTIONS (6)
  - Death [Fatal]
  - Large intestinal stenosis [Recovering/Resolving]
  - Diversion colitis [Recovering/Resolving]
  - Intestinal obstruction [Recovering/Resolving]
  - Fatigue [Recovered/Resolved]
  - Blood pressure decreased [Recovered/Resolved]

NARRATIVE: CASE EVENT DATE: 20220616
